FAERS Safety Report 18807797 (Version 3)
Quarter: 2021Q1

REPORT INFORMATION
  Report Type: Spontaneous
  Country: BR (occurrence: BR)
  Receive Date: 20210129
  Receipt Date: 20210217
  Transmission Date: 20210419
  Serious: Yes (Hospitalization)
  Sender: FDA-Public Use
  Company Number: BR-SA-2020SA206616

PATIENT
  Age: 28 Year
  Sex: Female
  Weight: 90 kg

DRUGS (1)
  1. CEREZYME [Suspect]
     Active Substance: IMIGLUCERASE
     Indication: GAUCHER^S DISEASE
     Dosage: 12 DF (DOSAGE FORM), Q15D
     Route: 042
     Dates: start: 20031230

REACTIONS (11)
  - Stress [Unknown]
  - COVID-19 [Unknown]
  - Malaise [Unknown]
  - SARS-CoV-2 test positive [Unknown]
  - Hypertension [Unknown]
  - Product dose omission issue [Unknown]
  - Pre-eclampsia [Unknown]
  - Exposure during pregnancy [Unknown]
  - Influenza [Recovered/Resolved]
  - Abdominal pain [Unknown]
  - Exposure via breast milk [Unknown]

NARRATIVE: CASE EVENT DATE: 2020
